FAERS Safety Report 5912509-X (Version None)
Quarter: 2008Q4

REPORT INFORMATION
  Report Type: 
  Country: None (occurrence: None)
  Receive Date: 20081007
  Receipt Date: 20081007
  Transmission Date: 20090506
  Serious: Yes (Hospitalization, Other)
  Sender: FDA-Public Use
  Company Number: None

PATIENT
  Age: 66 Year
  Sex: Female
  Weight: 136.0791 kg

DRUGS (1)
  1. OXYCONTIN [Suspect]
     Indication: POSTOPERATIVE ANALGESIA
     Dosage: 25MG Q8H PO  ONE DOSE
     Route: 048
     Dates: start: 20080908, end: 20080908

REACTIONS (3)
  - DYSPNOEA [None]
  - FEELING ABNORMAL [None]
  - HALLUCINATION [None]
